FAERS Safety Report 5102022-4 (Version None)
Quarter: 2006Q3

REPORT INFORMATION
  Report Type: 
  Country: None (occurrence: None)
  Receive Date: 20060907
  Receipt Date: 20060825
  Transmission Date: 20061208
  Serious: Yes (Hospitalization, Other)
  Sender: FDA-Public Use
  Company Number: 2006105705

PATIENT
  Age: 45 Year
  Sex: Male
  Weight: 89.8122 kg

DRUGS (2)
  1. BEXTRA [Suspect]
     Indication: BACK PAIN
     Dosage: 40 MG (20 MG,2 IN 1 D)
     Dates: start: 19970101, end: 20000101
  2. CELEBREX [Suspect]
     Indication: BACK PAIN
     Dates: start: 19990101, end: 20000101

REACTIONS (2)
  - CEREBROVASCULAR ACCIDENT [None]
  - HEART RATE ABNORMAL [None]
